FAERS Safety Report 7286506-9 (Version None)
Quarter: 2011Q1

REPORT INFORMATION
  Report Type: 
  Country: None (occurrence: None)
  Receive Date: 20110210
  Receipt Date: 20110207
  Transmission Date: 20110831
  Serious: Yes (Other)
  Sender: FDA-Public Use
  Company Number: DE-ABBOTT-11P-062-0703263-00

PATIENT
  Age: 76 Year
  Sex: Female

DRUGS (4)
  1. HUMIRA [Suspect]
     Indication: RHEUMATOID ARTHRITIS
     Route: 058
     Dates: start: 20090201
  2. LEFLUNOMIDE [Suspect]
     Dates: start: 20090101, end: 20090101
  3. LEFLUNOMIDE [Suspect]
     Indication: PRODUCT USED FOR UNKNOWN INDICATION
     Dates: end: 20090101
  4. LEFLUNOMIDE [Suspect]
     Dates: start: 20090101

REACTIONS (2)
  - WEIGHT DECREASED [None]
  - DECREASED ACTIVITY [None]
